FAERS Safety Report 8429898-7 (Version None)
Quarter: 2012Q2

REPORT INFORMATION
  Report Type: 
  Country: None (occurrence: None)
  Receive Date: 20120612
  Receipt Date: 20120530
  Transmission Date: 20120825
  Serious: No
  Sender: FDA-Public Use
  Company Number: US-ASTRAZENECA-2012SE32580

PATIENT
  Age: 49 Year
  Sex: Female

DRUGS (1)
  1. NEXIUM [Suspect]
     Route: 048

REACTIONS (11)
  - ABDOMINAL DISCOMFORT [None]
  - COUGH [None]
  - VOMITING [None]
  - ARTHROPATHY [None]
  - BACK DISORDER [None]
  - APHAGIA [None]
  - GASTROOESOPHAGEAL REFLUX DISEASE [None]
  - IMPAIRED WORK ABILITY [None]
  - LIMB DISCOMFORT [None]
  - INTENTIONAL DRUG MISUSE [None]
  - CHOKING [None]
